FAERS Safety Report 6402983-7 (Version None)
Quarter: 2009Q4

REPORT INFORMATION
  Report Type: 
  Country: None (occurrence: None)
  Receive Date: 20091013
  Receipt Date: 20090901
  Transmission Date: 20100525
  Serious: No
  Sender: FDA-Public Use
  Company Number: 2009BM000211

PATIENT
  Age: 25 Year
  Sex: Male
  Weight: 79.3795 kg

DRUGS (5)
  1. KUVAN [Suspect]
     Indication: NERVOUS SYSTEM DISORDER
     Dosage: 400 MG;QD;PO
     Route: 048
     Dates: start: 20080901
  2. SINEMET [Concomitant]
  3. SEROQUEL [Concomitant]
  4. ZOLOFT [Concomitant]
  5. COQ10 [Concomitant]

REACTIONS (5)
  - APHTHOUS STOMATITIS [None]
  - DYSPHAGIA [None]
  - OFF LABEL USE [None]
  - OROPHARYNGEAL PAIN [None]
  - WEIGHT DECREASED [None]
